FAERS Safety Report 10056042 (Version 1)
Quarter: 2014Q2

REPORT INFORMATION
  Report Type: Spontaneous
  Country: US (occurrence: US)
  Receive Date: 20140403
  Receipt Date: 20140403
  Transmission Date: 20141212
  Serious: No
  Sender: FDA-Public Use
  Company Number: US-009507513-1403USA013826

PATIENT
  Age: 16 Year
  Sex: Female
  Weight: 50.79 kg

DRUGS (3)
  1. NEXPLANON [Suspect]
     Indication: CONTRACEPTION
     Dosage: EVERY THREE YEARS, 1 ROD
     Route: 059
     Dates: start: 20130730
  2. OXCARBAZEPINE [Concomitant]
     Dosage: UNK
  3. SEROQUEL [Concomitant]
     Dosage: UNK

REACTIONS (2)
  - Mood swings [Unknown]
  - Menstruation irregular [Unknown]
